FAERS Safety Report 9266547 (Version 2)
Quarter: 2013Q4

REPORT INFORMATION
  Report Type: Report from Study
  Country: CA (occurrence: CA)
  Receive Date: 20130502
  Receipt Date: 20131220
  Transmission Date: 20140711
  Serious: Yes (Other)
  Sender: FDA-Public Use
  Company Number: CA-ROCHE-1219498

PATIENT
  Age: 67 Year
  Sex: Male

DRUGS (3)
  1. XOLAIR [Suspect]
     Indication: ASTHMA
     Route: 058
     Dates: start: 20121120
  2. XOLAIR [Suspect]
     Route: 058
     Dates: start: 20131216
  3. SPIRIVA [Suspect]
     Indication: PRODUCT USED FOR UNKNOWN INDICATION
     Route: 065

REACTIONS (7)
  - Pneumonia [Recovering/Resolving]
  - Respiratory tract infection [Recovering/Resolving]
  - Breath sounds abnormal [Recovering/Resolving]
  - Respiratory disorder [Recovering/Resolving]
  - Joint swelling [Unknown]
  - Dyspepsia [Unknown]
  - Body temperature decreased [Unknown]
